FAERS Safety Report 4548272-7 (Version None)
Quarter: 2005Q1

REPORT INFORMATION
  Report Type: 
  Country: None (occurrence: None)
  Receive Date: 20050110
  Receipt Date: 20041229
  Transmission Date: 20050727
  Serious: Yes (Disabling, Other)
  Sender: FDA-Public Use
  Company Number: US-JNJFOC-20050101145

PATIENT
  Sex: Female
  Weight: 68.04 kg

DRUGS (16)
  1. MOTRIN [Suspect]
     Indication: PAIN
     Dosage: UNKNOWN
     Route: 049
  2. DURAGESIC [Concomitant]
     Dosage: UNKNOWN
     Route: 061
  3. OXYCODONE HCL [Concomitant]
     Dosage: UNKNOWN
     Route: 049
  4. CELEXA [Concomitant]
     Dosage: UNKNOWN
     Route: 049
  5. ALPRAZOLAM [Concomitant]
     Dosage: UNKNOWN
     Route: 049
  6. BUSPIRONE [Concomitant]
     Dosage: UNKNOWN
     Route: 049
  7. MOBIC [Concomitant]
     Dosage: UNKNOWN
     Route: 049
  8. EXCEDRIN (MIGRAINE) [Concomitant]
     Route: 049
  9. EXCEDRIN (MIGRAINE) [Concomitant]
     Route: 049
  10. EXCEDRIN (MIGRAINE) [Concomitant]
     Route: 049
  11. EXCEDRIN (MIGRAINE) [Concomitant]
     Dosage: PRN
     Route: 049
  12. GLUCOSAMINE/CHONDROITIN [Concomitant]
     Route: 049
  13. GLUCOSAMINE/CHONDROITIN [Concomitant]
     Route: 049
  14. GLUCOSAMINE/CHONDROITIN [Concomitant]
     Route: 049
  15. GLUCOSAMINE/CHONDROITIN [Concomitant]
     Dosage: UNKNOWN
     Route: 049
  16. ADVIL [Concomitant]
     Dosage: PRN
     Route: 049

REACTIONS (5)
  - BEDRIDDEN [None]
  - BLINDNESS [None]
  - BLINDNESS UNILATERAL [None]
  - VISUAL DISTURBANCE [None]
  - WEIGHT INCREASED [None]
